FAERS Safety Report 17811701 (Version 1)
Quarter: 2020Q2

REPORT INFORMATION
  Report Type: Spontaneous
  Country: US (occurrence: US)
  Receive Date: 20200521
  Receipt Date: 20200521
  Transmission Date: 20200714
  Serious: Yes (Hospitalization)
  Sender: FDA-Public Use
  Company Number: None

PATIENT
  Age: 83 Year
  Sex: Female

DRUGS (2)
  1. LOSARTAN. [Suspect]
     Active Substance: LOSARTAN
     Route: 048
     Dates: start: 20200324, end: 20200505
  2. AMIODARONE [Suspect]
     Active Substance: AMIODARONE
     Dates: start: 20180524

REACTIONS (1)
  - Angioedema [None]

NARRATIVE: CASE EVENT DATE: 20200520
